FAERS Safety Report 6819566-7 (Version None)
Quarter: 2010Q3

REPORT INFORMATION
  Report Type: 
  Country: None (occurrence: None)
  Receive Date: 20100701
  Receipt Date: 20090605
  Transmission Date: 20110219
  Serious: No
  Sender: FDA-Public Use
  Company Number: US-TEVA-194072USA

PATIENT
  Sex: Male
  Weight: 86.26 kg

DRUGS (6)
  1. AZILECT [Suspect]
     Indication: PARKINSON'S DISEASE
     Route: 048
     Dates: start: 20090402
  2. GLIPIZIDE [Concomitant]
     Route: 048
  3. ACETYLSALICYLIC ACID [Concomitant]
     Route: 048
  4. FEXOFENADINE [Concomitant]
     Route: 048
  5. ATORVASTATIN CALCIUM [Concomitant]
     Route: 048
  6. GINKGO BILOBA [Concomitant]
     Route: 048

REACTIONS (4)
  - DIARRHOEA [None]
  - HEADACHE [None]
  - MUSCLE SPASMS [None]
  - NAUSEA [None]
